FAERS Safety Report 23968840 (Version 2)
Quarter: 2024Q3

REPORT INFORMATION
  Report Type: Spontaneous
  Country: US (occurrence: US)
  Receive Date: 20240612
  Receipt Date: 20240715
  Transmission Date: 20241017
  Serious: Yes (Hospitalization)
  Sender: TEVA
  Company Number: US-TEVA-VS-3207037

PATIENT
  Age: 83 Year
  Sex: Male

DRUGS (1)
  1. WARFARIN [Suspect]
     Active Substance: WARFARIN
     Indication: Coronary artery disease
     Route: 065

REACTIONS (2)
  - Nephropathy [Recovering/Resolving]
  - Acute kidney injury [Recovering/Resolving]
